FAERS Safety Report 18934859 (Version 2)
Quarter: 2021Q1

REPORT INFORMATION
  Report Type: Report from Study
  Country: US (occurrence: US)
  Receive Date: 20210224
  Receipt Date: 20210308
  Transmission Date: 20210420
  Serious: Yes (Hospitalization)
  Sender: FDA-Public Use
  Company Number: US-GLAXOSMITHKLINE-US2021GSK045099

PATIENT
  Age: 65 Year
  Sex: Male
  Weight: 96.15 kg

DRUGS (5)
  1. NIRAPARIB [Suspect]
     Active Substance: NIRAPARIB
     Indication: PANCREATIC CARCINOMA
  2. IPILIMUMAB [Suspect]
     Active Substance: IPILIMUMAB
     Indication: PANCREATIC CARCINOMA
     Dosage: 296 MG, Z (EVERY 3 WEEKS)
     Route: 042
     Dates: start: 20201221, end: 20201221
  3. IPILIMUMAB [Suspect]
     Active Substance: IPILIMUMAB
     Indication: ADENOCARCINOMA
     Dosage: 296 MG, Z (EVERY 3 WEEKS)
     Route: 042
     Dates: start: 20201022, end: 20201022
  4. NIRAPARIB [Suspect]
     Active Substance: NIRAPARIB
     Indication: ADENOCARCINOMA
     Dosage: 200 MG, DAILY
     Route: 048
     Dates: start: 20201022
  5. NIVOLUMAB [Suspect]
     Active Substance: NIVOLUMAB
     Indication: PANCREATIC CARCINOMA
     Dosage: UNK

REACTIONS (3)
  - Pneumonitis [Not Recovered/Not Resolved]
  - Sepsis [Unknown]
  - Pulmonary embolism [Unknown]

NARRATIVE: CASE EVENT DATE: 20210210
